FAERS Safety Report 11038707 (Version 2)
Quarter: 2015Q2

REPORT INFORMATION
  Report Type: Spontaneous
  Country: US (occurrence: US)
  Receive Date: 20150416
  Receipt Date: 20150511
  Transmission Date: 20150821
  Serious: Yes (Death, Hospitalization, Other)
  Sender: FDA-Public Use
  Company Number: US-009507513-1504USA015459

PATIENT
  Sex: Female
  Weight: 90.7 kg

DRUGS (1)
  1. JANUMET [Suspect]
     Active Substance: METFORMIN HYDROCHLORIDE\SITAGLIPTIN PHOSPHATE
     Indication: TYPE 2 DIABETES MELLITUS
     Dosage: 50-1000MG, QD
     Route: 048
     Dates: start: 20091206, end: 20120530

REACTIONS (13)
  - Chronic kidney disease [Not Recovered/Not Resolved]
  - Small intestinal obstruction [Unknown]
  - Ascites [Unknown]
  - Pneumonia [Unknown]
  - Urinary incontinence [Unknown]
  - Insulin-requiring type 2 diabetes mellitus [Unknown]
  - Acute kidney injury [Unknown]
  - Metastases to peritoneum [Unknown]
  - Inappropriate schedule of drug administration [Unknown]
  - Pancreatic carcinoma metastatic [Fatal]
  - Pancreatitis [Unknown]
  - Swelling [Unknown]
  - Drug ineffective [Unknown]

NARRATIVE: CASE EVENT DATE: 20110209
